FAERS Safety Report 5661295-X (Version None)
Quarter: 2008Q1

REPORT INFORMATION
  Report Type: 
  Country: None (occurrence: None)
  Receive Date: 20080312
  Receipt Date: 20080303
  Transmission Date: 20080703
  Serious: Yes (Hospitalization)
  Sender: FDA-Public Use
  Company Number: US-BAYER-200815770NA

PATIENT
  Age: 38 Year
  Sex: Female
  Weight: 84 kg

DRUGS (2)
  1. YAZ [Suspect]
     Indication: MOOD SWINGS
     Route: 048
     Dates: start: 20071217, end: 20080201
  2. EFFEXOR [Concomitant]
     Indication: DEPRESSION
     Dates: start: 19960101

REACTIONS (1)
  - PULMONARY THROMBOSIS [None]
